FAERS Safety Report 7420915-X (Version None)
Quarter: 2011Q2

REPORT INFORMATION
  Report Type: 
  Country: None (occurrence: None)
  Receive Date: 20110418
  Receipt Date: 20110408
  Transmission Date: 20111010
  Serious: Yes (Hospitalization)
  Sender: FDA-Public Use
  Company Number: B0710205A

PATIENT
  Sex: Female
  Weight: 66 kg

DRUGS (4)
  1. PREVISCAN [Suspect]
     Indication: CARDIOVASCULAR EVENT PROPHYLAXIS
     Dosage: 20MG PER DAY
     Route: 048
     Dates: start: 20101022, end: 20101103
  2. ARIXTRA [Suspect]
     Indication: THROMBOPHLEBITIS
     Dosage: 7.5MG PER DAY
     Route: 058
     Dates: start: 20101019, end: 20101103
  3. ZANIDIP [Concomitant]
     Dosage: 10MG PER DAY
     Route: 048
     Dates: end: 20101103
  4. COAPROVEL [Concomitant]
     Dosage: 300MG PER DAY
     Route: 048
     Dates: end: 20101103

REACTIONS (5)
  - ABDOMINAL PAIN [None]
  - CIRCULATORY COLLAPSE [None]
  - MUSCLE HAEMORRHAGE [None]
  - ANAEMIA [None]
  - HAEMORRHAGIC DISORDER [None]
